FAERS Safety Report 8937063 (Version 3)
Quarter: 2013Q2

REPORT INFORMATION
  Report Type: Spontaneous
  Country: IT (occurrence: IT)
  Receive Date: 20121129
  Receipt Date: 20130405
  Transmission Date: 20140414
  Serious: Yes (Hospitalization, Other)
  Sender: FDA-Public Use
  Company Number: IT-BRISTOL-MYERS SQUIBB COMPANY-17143694

PATIENT
  Age: 77 Year
  Sex: Female

DRUGS (6)
  1. COUMADIN TABS 5 MG [Suspect]
     Indication: PROPHYLAXIS
     Route: 048
     Dates: start: 20101204, end: 20121027
  2. OMEPRAZOLE [Concomitant]
     Dosage: 1 DOSAGE FORM = 1 DOSAGE UNIT
  3. MODURETIC [Concomitant]
     Dosage: 1 DF = 5 MG + 50 MG TABLETS
  4. EUTIROX [Concomitant]
  5. TRITACE [Concomitant]
  6. ALMARYTM [Concomitant]

REACTIONS (3)
  - Rectal haemorrhage [Recovering/Resolving]
  - Anaemia [Recovering/Resolving]
  - Haemorrhoids [Unknown]
